FAERS Safety Report 9860825 (Version 1)
Quarter: 2014Q1

REPORT INFORMATION
  Report Type: Spontaneous
  Country: US (occurrence: None)
  Receive Date: 20140131
  Receipt Date: 20140131
  Transmission Date: 20141002
  Serious: No
  Sender: FDA-Public Use
  Company Number: None

PATIENT
  Sex: Female
  Weight: 80.74 kg

DRUGS (9)
  1. ZOLPIDEM [Suspect]
     Indication: INSOMNIA
     Route: 048
     Dates: start: 20140109
  2. LIPITOR [Concomitant]
  3. FLUOXETIN [Concomitant]
  4. BUPROP [Concomitant]
  5. ASPIRIN [Concomitant]
  6. CALCIM  W/VITAMIN D [Concomitant]
  7. VITAMIN B COMPLEX [Concomitant]
  8. MULTIVITAMIN [Concomitant]
  9. GLUCOSOMINE/CONDROITIN [Concomitant]

REACTIONS (2)
  - Drug ineffective [None]
  - Product substitution issue [None]
